FAERS Safety Report 22596629 (Version 1)
Quarter: 2023Q2

REPORT INFORMATION
  Report Type: Spontaneous
  Country: SI (occurrence: SI)
  Receive Date: 20230613
  Receipt Date: 20230613
  Transmission Date: 20230722
  Serious: Yes (Hospitalization, Other)
  Sender: FDA-Public Use
  Company Number: SI-002147023-NVSC2023SI132809

PATIENT
  Age: 33 Year
  Sex: Female

DRUGS (17)
  1. PANTOPRAZOLE [Suspect]
     Active Substance: PANTOPRAZOLE
     Indication: Colitis ulcerative
     Dosage: 40 MG
     Route: 065
     Dates: start: 20181026
  2. IRON [Suspect]
     Active Substance: IRON
     Indication: Hypoalbuminaemia
     Dosage: 1000 MG
     Route: 051
     Dates: start: 201811
  3. IRON [Suspect]
     Active Substance: IRON
     Dosage: 1000 MG
     Route: 051
     Dates: start: 201904
  4. METHYLPREDNISOLONE [Concomitant]
     Active Substance: METHYLPREDNISOLONE
     Indication: Colitis ulcerative
     Dosage: 36 MG, QD
     Route: 065
     Dates: start: 20181026
  5. METHYLPREDNISOLONE [Concomitant]
     Active Substance: METHYLPREDNISOLONE
     Dosage: 36 MG, QD
     Route: 065
     Dates: start: 201902
  6. METHYLPREDNISOLONE [Concomitant]
     Active Substance: METHYLPREDNISOLONE
     Dosage: 16 MG
     Route: 065
     Dates: start: 201904
  7. METHYLPREDNISOLONE [Concomitant]
     Active Substance: METHYLPREDNISOLONE
     Dosage: 36 MG
     Route: 065
     Dates: start: 201904
  8. ALFACALCIDOL [Concomitant]
     Active Substance: ALFACALCIDOL
     Indication: Colitis ulcerative
     Dosage: 1 UG, QD
     Route: 065
     Dates: start: 20181026
  9. CALCIUM CARBONATE [Concomitant]
     Active Substance: CALCIUM CARBONATE
     Indication: Colitis ulcerative
     Dosage: 1 G
     Route: 065
     Dates: start: 20181026
  10. BUDESONIDE [Concomitant]
     Active Substance: BUDESONIDE
     Indication: Colitis ulcerative
     Dosage: 9 MG
     Route: 065
     Dates: start: 201811, end: 201902
  11. HYDROCORTISONE [Concomitant]
     Active Substance: HYDROCORTISONE
     Indication: Colitis ulcerative
     Dosage: UNK, BID
     Route: 065
     Dates: start: 201811
  12. MESALAMINE [Concomitant]
     Active Substance: MESALAMINE
     Indication: Colitis ulcerative
     Dosage: 4 G (ENTERIC COATED)
     Route: 065
     Dates: start: 201811
  13. MESALAMINE [Concomitant]
     Active Substance: MESALAMINE
     Dosage: 4 G
     Route: 065
     Dates: start: 201902
  14. MESALAMINE [Concomitant]
     Active Substance: MESALAMINE
     Dosage: 3 G
     Route: 065
     Dates: start: 201904
  15. VITAMIN D3 [Concomitant]
     Active Substance: CHOLECALCIFEROL
     Indication: Product used for unknown indication
     Dosage: 35 DRP, QW
     Route: 065
     Dates: start: 201811
  16. METAMIZOLE SODIUM [Concomitant]
     Active Substance: METAMIZOLE SODIUM
     Indication: Product used for unknown indication
     Dosage: UNK, PRN
     Route: 065
     Dates: start: 201811
  17. ALPRAZOLAM [Concomitant]
     Active Substance: ALPRAZOLAM
     Indication: Colitis ulcerative
     Dosage: 0.25 MG
     Route: 065
     Dates: start: 201811

REACTIONS (21)
  - Abdominal pain [Not Recovered/Not Resolved]
  - Diarrhoea haemorrhagic [Not Recovered/Not Resolved]
  - Vomiting [Not Recovered/Not Resolved]
  - Eating disorder [Not Recovered/Not Resolved]
  - Nausea [Not Recovered/Not Resolved]
  - Abdominal pain lower [Not Recovered/Not Resolved]
  - Frequent bowel movements [Not Recovered/Not Resolved]
  - Hypokalaemia [Unknown]
  - Colitis ulcerative [Unknown]
  - Haematochezia [Unknown]
  - Chronic gastritis [Unknown]
  - Serum ferritin decreased [Unknown]
  - Hypoalbuminaemia [Unknown]
  - Anti-saccharomyces cerevisiae antibody test positive [Unknown]
  - Proctitis [Not Recovered/Not Resolved]
  - Oedema [Not Recovered/Not Resolved]
  - Vaginal infection [Unknown]
  - Vitamin D decreased [Unknown]
  - Iron deficiency anaemia [Unknown]
  - Mucous stools [Unknown]
  - Product use in unapproved indication [Unknown]

NARRATIVE: CASE EVENT DATE: 20181101
